FAERS Safety Report 10236243 (Version 1)
Quarter: 2014Q1

REPORT INFORMATION
  Report Type: Spontaneous
  Country: US (occurrence: None)
  Receive Date: 20140306
  Receipt Date: 20140306
  Transmission Date: 20141002
  Serious: Yes (Other)
  Sender: FDA-Public Use
  Company Number: 163-21880-13032118

PATIENT
  Age: 73 Year
  Sex: Female
  Weight: 58.51 kg

DRUGS (6)
  1. REVLIMID (LENALIDOMIDE) (25 MILLIGRAM, CAPSULES) [Suspect]
     Indication: NON-HODGKIN^S LYMPHOMA
     Route: 048
     Dates: start: 20130213
  2. ACYCLOVIR (ACICLOVIR) (CAPSULES) [Concomitant]
  3. CALCIUM 500 (CALCIUM) (UNKNOWN) [Concomitant]
  4. HYDROCLOOROTHIAZIDE (HYDROCHLOROTHIAZIDE) (UNKNOWN) [Concomitant]
  5. REDNESS RELIEVER (OPHTHALMOLOGICAL AND OTOLOGICAL PREPARATIONS) (EYE DROPS) [Concomitant]
  6. TYLENOL EXTRA STRENGTH (PARACETAMOL) (UNKNOWN) [Concomitant]

REACTIONS (3)
  - Balance disorder [None]
  - Nausea [None]
  - Asthenia [None]
